FAERS Safety Report 4338026-9 (Version None)
Quarter: 2004Q2

REPORT INFORMATION
  Report Type: 
  Country: None (occurrence: None)
  Receive Date: 20040408
  Receipt Date: 20040329
  Transmission Date: 20050107
  Serious: Yes (Life-Threatening, Disabling, Congenital Anomaly)
  Sender: FDA-Public Use
  Company Number: K200400466

PATIENT
  Sex: Male
  Weight: 1.9 kg

DRUGS (3)
  1. METHIMAZOLE [Suspect]
     Indication: BASEDOW'S DISEASE
     Dosage: 40 MG, QD, TRANSPLACENTAL
     Route: 064
  2. PROPRANOLOL [Suspect]
     Dosage: 20 MG, QD, TRANSPLACENTAL
     Route: 064
  3. HALOPERIDOL [Suspect]
     Dosage: 10 MG, QD, TRANSPLACENTAL
     Route: 064

REACTIONS (12)
  - ABDOMINAL WALL ANOMALY [None]
  - ANTIBODY TEST ABNORMAL [None]
  - CAESAREAN SECTION [None]
  - DEVELOPMENTAL DELAY [None]
  - EXOMPHALOS [None]
  - HYPOKINESIA [None]
  - MATERNAL DRUGS AFFECTING FOETUS [None]
  - PREMATURE BABY [None]
  - PREMATURE SEPARATION OF PLACENTA [None]
  - SKIN MALFORMATION [None]
  - TREATMENT NONCOMPLIANCE [None]
  - TWIN PREGNANCY [None]
